FAERS Safety Report 5133251-1 (Version None)
Quarter: 2006Q4

REPORT INFORMATION
  Report Type: 
  Country: None (occurrence: None)
  Receive Date: 20061018
  Receipt Date: 20061012
  Transmission Date: 20070319
  Serious: Yes (Life-Threatening, Hospitalization)
  Sender: FDA-Public Use
  Company Number: 2005169390

PATIENT
  Age: 50 Year
  Sex: Male

DRUGS (3)
  1. AMLODIPINE [Suspect]
     Indication: ANGINA PECTORIS
     Dosage: 10 MG
  2. ARTHROTEC [Suspect]
     Indication: OSTEOARTHRITIS
     Dosage: 75 MG
  3. ATENOLOL [Suspect]
     Indication: ANGINA PECTORIS
     Dosage: 50 MG, ORAL
     Route: 048

REACTIONS (14)
  - ATRIOVENTRICULAR BLOCK THIRD DEGREE [None]
  - BACK PAIN [None]
  - CARDIOGENIC SHOCK [None]
  - CIRCULATORY COLLAPSE [None]
  - DIZZINESS [None]
  - DRUG INEFFECTIVE [None]
  - DRUG TOXICITY [None]
  - FALL [None]
  - GENERAL PHYSICAL HEALTH DETERIORATION [None]
  - HYPERGLYCAEMIA [None]
  - HYPERKALAEMIA [None]
  - METABOLIC ACIDOSIS [None]
  - MYOCARDIAL INFARCTION [None]
  - RENAL FAILURE ACUTE [None]
